FAERS Safety Report 12995587 (Version 3)
Quarter: 2017Q1

REPORT INFORMATION
  Report Type: Report from Study
  Country: KR (occurrence: KR)
  Receive Date: 20161202
  Receipt Date: 20170306
  Transmission Date: 20170428
  Serious: Yes (Hospitalization)
  Sender: FDA-Public Use
  Company Number: KR-GLAXOSMITHKLINE-KR2016GSK177145

PATIENT
  Age: 71 Year
  Sex: Female
  Weight: 66.9 kg

DRUGS (12)
  1. NICETILE [Concomitant]
     Active Substance: ACETYLCARNITINE HYDROCHLORIDE
     Indication: INTRACRANIAL ANEURYSM
     Dosage: 500 MG, BID
     Route: 048
     Dates: start: 20140409
  2. DICAMAX D [Concomitant]
     Indication: OSTEOPENIA
     Dosage: 1 DF, QD
     Route: 048
     Dates: start: 20150601
  3. DEXTROSE + SODIUM + POTASSIUM [Concomitant]
     Indication: FLUID REPLACEMENT
     Dosage: 1000 ML, BID
     Route: 042
     Dates: start: 20161026, end: 20161027
  4. CADUET [Concomitant]
     Active Substance: AMLODIPINE BESYLATE\ATORVASTATIN CALCIUM
     Indication: ESSENTIAL HYPERTENSION
     Dosage: 1 DF, QD
     Route: 048
     Dates: start: 20120202
  5. ULTRACET [Concomitant]
     Active Substance: ACETAMINOPHEN\TRAMADOL HYDROCHLORIDE
     Indication: HERPES ZOSTER
     Dosage: 362.5 MG, BID
     Route: 048
     Dates: start: 20161027, end: 20161110
  6. ROWACHOL [Concomitant]
     Active Substance: HERBALS
     Indication: CHOLELITHIASIS
     Dosage: 1 DF, TID
     Route: 048
     Dates: start: 20161027, end: 20161126
  7. POFOL [Concomitant]
     Indication: OESOPHAGOGASTRODUODENOSCOPY
     Dosage: 120 MG, 1D
     Route: 042
     Dates: start: 20161027, end: 20161027
  8. SYMBICORT [Concomitant]
     Active Substance: BUDESONIDE\FORMOTEROL FUMARATE DIHYDRATE
     Indication: ASTHMA
     Dosage: 1 PUFF(S), BID
     Route: 055
     Dates: start: 20160112, end: 20160724
  9. LYRICA [Concomitant]
     Active Substance: PREGABALIN
     Indication: HERPES ZOSTER
     Dosage: 75 MG, BID
     Route: 048
     Dates: start: 20161027, end: 20161110
  10. FAMVIR [Concomitant]
     Active Substance: FAMCICLOVIR
     Indication: HERPES ZOSTER
     Dosage: 250 MG, TID
     Route: 048
     Dates: start: 20161027, end: 20161110
  11. FLUTICASONE FUROATE + VILANTEROL TRIFENATATE [Suspect]
     Active Substance: FLUTICASONE FUROATE\VILANTEROL TRIFENATATE
     Indication: ASTHMA
     Dosage: 25 MG, QD
     Route: 055
     Dates: start: 20160725
  12. EPOCELIN [Concomitant]
     Dosage: 2000 MG, TID
     Route: 042
     Dates: start: 20161026, end: 20161027

REACTIONS (1)
  - Abdominal pain upper [Recovered/Resolved]

NARRATIVE: CASE EVENT DATE: 20161020
